FAERS Safety Report 25676777 (Version 1)
Quarter: 2025Q3

REPORT INFORMATION
  Report Type: Spontaneous
  Country: US (occurrence: None)
  Receive Date: 20250812
  Receipt Date: 20250812
  Transmission Date: 20251020
  Serious: Yes (Other)
  Sender: FDA-CTU
  Company Number: None

PATIENT
  Age: 34 Year
  Sex: Male
  Weight: 105.75 kg

DRUGS (10)
  1. FLUPHENAZINE [Suspect]
     Active Substance: FLUPHENAZINE
     Indication: Anger
     Dosage: OTHER QUANTITY : 30 TABLET(S);?FREQUENCY : TWICE A DAY;?
     Route: 048
  2. TIVICAY [Concomitant]
     Active Substance: DOLUTEGRAVIR SODIUM
  3. DESCOVY [Concomitant]
     Active Substance: EMTRICITABINE\TENOFOVIR ALAFENAMIDE FUMARATE
  4. OMEPRAZOLE [Concomitant]
     Active Substance: OMEPRAZOLE
  5. FLUPHENAZINE [Concomitant]
     Active Substance: FLUPHENAZINE
  6. TRAZODONE [Concomitant]
     Active Substance: TRAZODONE HYDROCHLORIDE
  7. HYDROXYZINE [Concomitant]
     Active Substance: HYDROXYZINE HYDROCHLORIDE
  8. Magnesium glycolate [Concomitant]
  9. CITRATE [Concomitant]
     Active Substance: CITRIC ACID MONOHYDRATE
  10. malate x3 Ashwagandha L-Theanine [Concomitant]

REACTIONS (4)
  - Headache [None]
  - Hostility [None]
  - Antisocial personality disorder [None]
  - Intrusive thoughts [None]

NARRATIVE: CASE EVENT DATE: 20250812
